FAERS Safety Report 17814193 (Version 1)
Quarter: 2020Q2

REPORT INFORMATION
  Report Type: Spontaneous
  Country: CN (occurrence: CN)
  Receive Date: 20200522
  Receipt Date: 20200522
  Transmission Date: 20200714
  Serious: Yes (Other)
  Sender: FDA-Public Use
  Company Number: CN-MICRO LABS LIMITED-ML2020-01597

PATIENT
  Age: 21 Year
  Sex: Male

DRUGS (9)
  1. FOSINOPRIL SODIUM. [Suspect]
     Active Substance: FOSINOPRIL SODIUM
     Indication: MALIGNANT HYPERTENSION
     Route: 048
  2. VERAPAMIL HYDROCHLORIDE. [Suspect]
     Active Substance: VERAPAMIL HYDROCHLORIDE
     Indication: MALIGNANT HYPERTENSION
     Route: 048
  3. NIFEDIPINE. [Suspect]
     Active Substance: NIFEDIPINE
     Indication: MALIGNANT HYPERTENSION
     Route: 048
  4. TERAZOSIN HYDROCHLORIDE. [Suspect]
     Active Substance: TERAZOSIN HYDROCHLORIDE
     Indication: MALIGNANT HYPERTENSION
     Route: 048
  5. OLMESARTAN MEDOXOMIL. [Suspect]
     Active Substance: OLMESARTAN MEDOXOMIL
     Indication: MALIGNANT HYPERTENSION
     Route: 048
  6. METOPROLOL SUCCINATE. [Suspect]
     Active Substance: METOPROLOL SUCCINATE
     Indication: MALIGNANT HYPERTENSION
     Dosage: BETALOC
  7. FELODIPINE. [Suspect]
     Active Substance: FELODIPINE
     Indication: MALIGNANT HYPERTENSION
     Route: 048
  8. NITRENDIPINE [Suspect]
     Active Substance: NITRENDIPINE
     Indication: MALIGNANT HYPERTENSION
     Route: 048
  9. PRAZOSIN. [Suspect]
     Active Substance: PRAZOSIN
     Indication: MALIGNANT HYPERTENSION

REACTIONS (1)
  - Drug ineffective [Unknown]
